FAERS Safety Report 25951547 (Version 1)
Quarter: 2025Q4

REPORT INFORMATION
  Report Type: Other
  Country: GB (occurrence: GB)
  Receive Date: 20251023
  Receipt Date: 20251023
  Transmission Date: 20260118
  Serious: Yes (Other)
  Sender: GLENMARK
  Company Number: GB-MHRA-37308141

PATIENT
  Sex: Female

DRUGS (1)
  1. TOPIRAMATE [Suspect]
     Active Substance: TOPIRAMATE
     Indication: Migraine prophylaxis
     Dosage: UNK
     Route: 065

REACTIONS (3)
  - Abortion spontaneous [Unknown]
  - Teratogenicity [Unknown]
  - Maternal exposure during pregnancy [Unknown]
